FAERS Safety Report 15427309 (Version 4)
Quarter: 2018Q4

REPORT INFORMATION
  Report Type: Spontaneous
  Country: MA (occurrence: MA)
  Receive Date: 20180925
  Receipt Date: 20181023
  Transmission Date: 20190204
  Serious: Yes (Hospitalization)
  Sender: FDA-Public Use
  Company Number: PHHY2018MA107758

PATIENT
  Age: 64 Year
  Sex: Male

DRUGS (2)
  1. TASIGNA [Suspect]
     Active Substance: NILOTINIB
     Indication: CHRONIC MYELOID LEUKAEMIA
     Dosage: 2 DF, BID (2 IN MORNING AND 2 IN EVENING)
     Route: 065
     Dates: start: 2015
  2. TASIGNA [Suspect]
     Active Substance: NILOTINIB
     Dosage: HALF A DOSAGE FOR ONE WEEK
     Route: 065

REACTIONS (1)
  - Myocardial infarction [Recovering/Resolving]

NARRATIVE: CASE EVENT DATE: 201808
